FAERS Safety Report 24838774 (Version 1)
Quarter: 2025Q1

REPORT INFORMATION
  Report Type: Spontaneous
  Country: KR (occurrence: KR)
  Receive Date: 20250113
  Receipt Date: 20250113
  Transmission Date: 20250409
  Serious: Yes (Hospitalization, Other)
  Sender: ORGANON
  Company Number: KR-ORGANON-O2501KOR000528

PATIENT
  Age: 54 Year
  Sex: Male
  Weight: 76 kg

DRUGS (8)
  1. ATORVASTATIN CALCIUM\EZETIMIBE [Suspect]
     Active Substance: ATORVASTATIN CALCIUM\EZETIMIBE
     Indication: Hyperlipidaemia
     Dosage: 1 DOSAGE FORM, QD, FILM COATED TABLETS
     Route: 048
     Dates: start: 20150916
  2. INDAPAMIDE [Concomitant]
     Active Substance: INDAPAMIDE
     Indication: Hypertension
     Dosage: 1.5 MILLIGRAM, QD, SUSTAINED RELEASE
     Route: 048
     Dates: start: 20150304
  3. VALSARTAN [Concomitant]
     Active Substance: VALSARTAN
     Indication: Hypertension
     Dosage: 160 MILLIGRAM, QD
     Route: 048
     Dates: start: 20150304
  4. TRIMETAZIDINE DIHYDROCHLORIDE [Concomitant]
     Active Substance: TRIMETAZIDINE DIHYDROCHLORIDE
     Indication: Angina unstable
     Dosage: 35 MILLIGRAM, BID (0.5 DAY) (SUSTAINED-RELEASE FILM COATED TABLETS)
     Route: 048
     Dates: start: 20150610
  5. METFORMIN HYDROCHLORIDE [Concomitant]
     Active Substance: METFORMIN HYDROCHLORIDE
     Indication: Type 2 diabetes mellitus
     Dosage: 500 MILLIGRAM, QD, SUSTAINED RELEASE
     Route: 048
     Dates: start: 20131113
  6. CARBAMAZEPINE [Concomitant]
     Active Substance: CARBAMAZEPINE
     Indication: Trigeminal neuralgia
     Dosage: 200 MILLIGRAM, BID (0.5 DAY) ( SUSTAINED-RELEASE FILM COATED TABLETS)
     Route: 048
     Dates: start: 20081105
  7. OMEGA-3-ACID ETHYL ESTERS [Concomitant]
     Active Substance: OMEGA-3-ACID ETHYL ESTERS
     Indication: Hyperlipidaemia
     Dosage: 1 DOSAGE FORM, QD (CAPSULE, SOFT) 90
     Route: 048
     Dates: start: 20110817
  8. ASPIRIN\CLOPIDOGREL [Concomitant]
     Active Substance: ASPIRIN\CLOPIDOGREL
     Indication: Prophylaxis
     Dosage: 1 DOSAGE FORM, QD (HARD CAPSULES, GRANULES)
     Route: 048
     Dates: start: 20140514, end: 20160120

REACTIONS (2)
  - Bronchitis [Recovered/Resolved]
  - Mycobacterial infection [Recovered/Resolved]

NARRATIVE: CASE EVENT DATE: 20160116
